FAERS Safety Report 13572682 (Version 1)
Quarter: 2017Q2

REPORT INFORMATION
  Report Type: Spontaneous
  Country: US (occurrence: US)
  Receive Date: 20170523
  Receipt Date: 20170523
  Transmission Date: 20170830
  Serious: No
  Sender: FDA-Public Use
  Company Number: US-JNJFOC-20170320125

PATIENT
  Age: 34 Year
  Sex: Male

DRUGS (1)
  1. INVEGA TRINZA [Suspect]
     Active Substance: PALIPERIDONE PALMITATE
     Indication: SCHIZOPHRENIA
     Dosage: ABOUT 1 YEAR AGO
     Route: 030

REACTIONS (3)
  - Fatigue [Unknown]
  - Weight increased [Unknown]
  - Libido decreased [Unknown]
